FAERS Safety Report 5001930-2 (Version None)
Quarter: 2006Q2

REPORT INFORMATION
  Report Type: 
  Country: None (occurrence: None)
  Receive Date: 20060515
  Receipt Date: 20051005
  Transmission Date: 20061013
  Serious: Yes (Disabling, Other)
  Sender: FDA-Public Use
  Company Number: US-MERCK-0510USA05012

PATIENT
  Age: 53 Year
  Sex: Male
  Weight: 106 kg

DRUGS (4)
  1. VIOXX [Suspect]
     Indication: ARTHRALGIA
     Route: 048
     Dates: start: 19980101, end: 20050301
  2. VIOXX [Suspect]
     Indication: OSTEOARTHRITIS
     Route: 048
     Dates: start: 19980101, end: 20050301
  3. CELEBREX [Concomitant]
     Route: 065
  4. [THERAPY UNSPECIFIED] [Concomitant]
     Indication: DEPRESSION
     Route: 065

REACTIONS (7)
  - ANGINA PECTORIS [None]
  - CEREBRAL HAEMORRHAGE [None]
  - HYPERTENSION [None]
  - MAJOR DEPRESSION [None]
  - MIGRAINE [None]
  - MYOCARDIAL INFARCTION [None]
  - OVERDOSE [None]
